FAERS Safety Report 18349765 (Version 1)
Quarter: 2020Q4

REPORT INFORMATION
  Report Type: Spontaneous
  Country: CN (occurrence: CN)
  Receive Date: 20201006
  Receipt Date: 20201006
  Transmission Date: 20210114
  Serious: Yes (Hospitalization)
  Sender: FDA-Public Use
  Company Number: CN-BAXTER-2020BAX019938

PATIENT
  Age: 49 Year
  Sex: Female
  Weight: 71 kg

DRUGS (19)
  1. ENDOXAN [Suspect]
     Active Substance: CYCLOPHOSPHAMIDE
     Indication: INVASIVE DUCTAL BREAST CARCINOMA
     Dosage: 1ST AND 2ND CHEMOTHERAPY CYCLOPHOSPHAMIDE + NS,  INTRA-PUMP INJECTION
     Route: 050
  2. 0.9% SODIUM CHLORIDE INJECTION [Suspect]
     Active Substance: SODIUM CHLORIDE
     Dosage: THIRD CHEMOTHERAPY, 0.9% SODIUM CHLORIDE + CYCLOPHOSPHAMIDE ROUTE: INTRA-PUMP INJECTION
     Route: 050
     Dates: start: 20200910, end: 20200910
  3. ENDOXAN [Suspect]
     Active Substance: CYCLOPHOSPHAMIDE
     Dosage: DOSE RE-INTRODUCED,  0.9% SODIUM CHLORIDE + CYCLOPHOSPHAMIDE ROUTE: INTRA-PUMP INJECTION
     Route: 050
  4. 0.9% SODIUM CHLORIDE INJECTION [Suspect]
     Active Substance: SODIUM CHLORIDE
     Dosage: 1ST AND 2ND CHEMOTHERAPY 0.9% SODIUM CHLORIDE + TRASTUZUMAB
     Route: 041
  5. 0.9% SODIUM CHLORIDE INJECTION [Suspect]
     Active Substance: SODIUM CHLORIDE
     Dosage: THIRD CHEMOTHERAPY, 0.9% SODIUM CHLORIDE + TRASTUZUMAB
     Route: 041
     Dates: start: 20200910, end: 20200910
  6. 0.9% SODIUM CHLORIDE INJECTION [Suspect]
     Active Substance: SODIUM CHLORIDE
     Dosage: DOSE RE-INTRODUCED,  0.9% SODIUM CHLORIDE + CYCLOPHOSPHAMIDE ROUTE: INTRA-PUMP INJECTION
     Route: 050
  7. 5% GLUCOSE  INJECTION [Suspect]
     Active Substance: DEXTROSE
     Dosage: DOSE RE-INTRODUCED, 5% GLUCOSE + EPIRUBICIN
     Route: 041
  8. TRASTUZUMAB. [Suspect]
     Active Substance: TRASTUZUMAB
     Dosage: THIRD CHEMOTHERAPY, 0.9% SODIUM CHLORIDE + TRASTUZUMAB
     Route: 041
     Dates: start: 20200910, end: 20200910
  9. EPIRUBICIN [Suspect]
     Active Substance: EPIRUBICIN
     Dosage: THIRD CHEMOTHERAPY, 5% GLUCOSE + EPIRUBICIN
     Route: 041
     Dates: start: 20200910, end: 20200910
  10. 5% GLUCOSE  INJECTION [Suspect]
     Active Substance: DEXTROSE
     Dosage: THIRD CHEMOTHERAPY, 5% GLUCOSE + EPIRUBICIN
     Route: 041
     Dates: start: 20200910, end: 20200910
  11. TRASTUZUMAB. [Suspect]
     Active Substance: TRASTUZUMAB
     Indication: INVASIVE DUCTAL BREAST CARCINOMA
     Dosage: 1ST AND 2ND CHEMOTHERAPY 0.9% SODIUM CHLORIDE + TRASTUZUMAB
     Route: 041
  12. 0.9% SODIUM CHLORIDE INJECTION [Suspect]
     Active Substance: SODIUM CHLORIDE
     Indication: MEDICATION DILUTION
     Dosage: 1ST AND 2ND CHEMOTHERAPY CYCLOPHOSPHAMIDE + NS,  INTRA-PUMP INJECTION
     Route: 050
  13. EPIRUBICIN [Suspect]
     Active Substance: EPIRUBICIN
     Indication: INVASIVE DUCTAL BREAST CARCINOMA
     Dosage: 1ST AND 2ND CHEMOTHERAPY  5% GLUCOSE + EPIRUBICIN
     Route: 041
  14. RECOMBINANT HUMAN GRANULOCYTE COLONY-STIMULATING FACTOR [Concomitant]
     Active Substance: GRANULOCYTE COLONY-STIMULATING FACTOR NOS
     Indication: PROPHYLAXIS
     Route: 058
     Dates: start: 20200915
  15. ENDOXAN [Suspect]
     Active Substance: CYCLOPHOSPHAMIDE
     Dosage: THIRD CHEMOTHERAPY, 0.9% SODIUM CHLORIDE + CYCLOPHOSPHAMIDE ROUTE: INTRA-PUMP INJECTION
     Route: 050
     Dates: start: 20200910, end: 20200910
  16. 5% GLUCOSE  INJECTION [Suspect]
     Active Substance: DEXTROSE
     Indication: MEDICATION DILUTION
     Dosage: 1ST AND 2ND CHEMOTHERAPY  5% GLUCOSE + EPIRUBICIN
     Route: 041
  17. 0.9% SODIUM CHLORIDE INJECTION [Suspect]
     Active Substance: SODIUM CHLORIDE
     Dosage: DOSE RE-INTRODUCED, 0.9% SODIUM CHLORIDE INJECTION + TRASTUZUMAB
     Route: 041
  18. TRASTUZUMAB. [Suspect]
     Active Substance: TRASTUZUMAB
     Dosage: DOSE RE-INTRODUCED, 0.9% SODIUM CHLORIDE INJECTION + TRASTUZUMAB
     Route: 041
  19. EPIRUBICIN [Suspect]
     Active Substance: EPIRUBICIN
     Dosage: DOSE RE-INTRODUCED, 5% GLUCOSE + EPIRUBICIN
     Route: 041

REACTIONS (1)
  - Myelosuppression [Recovering/Resolving]

NARRATIVE: CASE EVENT DATE: 20200921
